FAERS Safety Report 18098068 (Version 1)
Quarter: 2020Q3

REPORT INFORMATION
  Report Type: Spontaneous
  Country: US (occurrence: US)
  Receive Date: 20200731
  Receipt Date: 20200731
  Transmission Date: 20201103
  Serious: Yes (Death)
  Sender: FDA-Public Use
  Company Number: None

PATIENT
  Sex: Female

DRUGS (12)
  1. CALCIUM [Concomitant]
     Active Substance: CALCIUM
  2. MYRBETRIQ [Concomitant]
     Active Substance: MIRABEGRON
  3. VITAMIN D [Concomitant]
     Active Substance: VITAMIN D NOS
  4. DILTIAZEM. [Concomitant]
     Active Substance: DILTIAZEM
  5. TRADJENTA [Concomitant]
     Active Substance: LINAGLIPTIN
  6. PRAVASTATIN. [Concomitant]
     Active Substance: PRAVASTATIN
  7. BOSULIF [Suspect]
     Active Substance: BOSUTINIB MONOHYDRATE
     Indication: CHRONIC MYELOID LEUKAEMIA
     Route: 048
     Dates: start: 20170809
  8. TOUJEO [Concomitant]
     Active Substance: INSULIN GLARGINE
  9. FENOFIBRATE. [Concomitant]
     Active Substance: FENOFIBRATE
  10. NOVOLOG [Concomitant]
     Active Substance: INSULIN ASPART
  11. ELIQUIS [Concomitant]
     Active Substance: APIXABAN
  12. PREVACID [Concomitant]
     Active Substance: LANSOPRAZOLE

REACTIONS (1)
  - Death [None]
